FAERS Safety Report 4416745-3 (Version None)
Quarter: 2004Q3

REPORT INFORMATION
  Report Type: 
  Country: None (occurrence: None)
  Receive Date: 20040802
  Receipt Date: 20040326
  Transmission Date: 20050211
  Serious: Yes (Other)
  Sender: FDA-Public Use
  Company Number: CH 2004 0004

PATIENT
  Age: 32 Year
  Sex: Male

DRUGS (1)
  1. DOTAREM MEGLUMINE GADOTERATE [Suspect]
     Indication: NUCLEAR MAGNETIC RESONANCE IMAGING BRAIN
     Dosage: 15 ML PER DAY
     Route: 042
     Dates: start: 20040326

REACTIONS (14)
  - ASTHENIA [None]
  - BLINDNESS [None]
  - CONTRAST MEDIA REACTION [None]
  - ERYTHEMA [None]
  - EXTRAVASATION [None]
  - INFECTION [None]
  - INJECTION SITE NECROSIS [None]
  - OPEN WOUND [None]
  - POST PROCEDURAL COMPLICATION [None]
  - PROCEDURAL SITE REACTION [None]
  - SKIN GRAFT [None]
  - SKIN ULCER [None]
  - STUPOR [None]
  - VENOUS THROMBOSIS LIMB [None]
